FAERS Safety Report 5933826-3 (Version None)
Quarter: 2008Q4

REPORT INFORMATION
  Report Type: 
  Country: None (occurrence: None)
  Receive Date: 20081024
  Receipt Date: 20081013
  Transmission Date: 20090506
  Serious: Yes (Other)
  Sender: FDA-Public Use
  Company Number: US024578

PATIENT
  Age: 46 Year
  Sex: Male
  Weight: 100.2449 kg

DRUGS (9)
  1. ARMODAFINIL [Suspect]
     Indication: MAJOR DEPRESSION
     Dosage: 250 MG QD ORAL
     Route: 048
     Dates: start: 20080708, end: 20080909
  2. ARMODAFINIL [Suspect]
     Indication: SLEEP DISORDER
     Dosage: 250 MG QD ORAL
     Route: 048
     Dates: start: 20080708, end: 20080909
  3. ARMODAFINIL [Suspect]
     Indication: SOMNOLENCE
     Dosage: 250 MG QD ORAL
     Route: 048
     Dates: start: 20080708, end: 20080909
  4. PLACEBO [Suspect]
     Indication: MAJOR DEPRESSION
     Dosage: 250 MG QD ORAL
     Route: 048
     Dates: start: 20080708, end: 20080909
  5. PLACEBO [Suspect]
     Indication: SLEEP DISORDER
     Dosage: 250 MG QD ORAL
     Route: 048
     Dates: start: 20080708, end: 20080909
  6. PLACEBO [Suspect]
     Indication: SOMNOLENCE
     Dosage: 250 MG QD ORAL
     Route: 048
     Dates: start: 20080708, end: 20080909
  7. LANSOPRAZOLE [Concomitant]
  8. ATORVASTATIN CALCIUM [Concomitant]
  9. VENLAFAXINE HCL [Concomitant]

REACTIONS (3)
  - FOLLICULITIS [None]
  - RASH PAPULAR [None]
  - RASH PRURITIC [None]
